FAERS Safety Report 7823001-X (Version None)
Quarter: 2011Q4

REPORT INFORMATION
  Report Type: 
  Country: None (occurrence: None)
  Receive Date: 20111018
  Receipt Date: 20110419
  Transmission Date: 20120403
  Serious: No
  Sender: FDA-Public Use
  Company Number: US-ASTRAZENECA-2011SE00257

PATIENT
  Age: 575 Month
  Sex: Female
  Weight: 86.2 kg

DRUGS (8)
  1. SYMBICORT [Suspect]
     Indication: HYPERSENSITIVITY
     Dosage: 160/4.5 MCG 2 PUFFS BID
     Route: 055
     Dates: start: 20101201, end: 20101231
  2. BLOOD PRESSURE MEDICATION [Concomitant]
  3. SYMBICORT [Suspect]
     Indication: COUGH
     Dosage: 160/4.5 MCG 2 PUFFS BID
     Route: 055
     Dates: start: 20101201, end: 20101231
  4. HIGH CHOLESTEROL MEDICATION [Concomitant]
  5. SYNTHROID [Concomitant]
  6. VITAMIN TAB [Concomitant]
  7. SYMBICORT [Suspect]
     Indication: ASTHMA
     Dosage: 160/4.5 MCG 2 PUFFS BID
     Route: 055
     Dates: start: 20101201, end: 20101231
  8. FISH OIL [Concomitant]

REACTIONS (3)
  - HEART RATE INCREASED [None]
  - DRUG INTOLERANCE [None]
  - INCORRECT DOSE ADMINISTERED [None]
